FAERS Safety Report 8033173-2 (Version None)
Quarter: 2011Q4

REPORT INFORMATION
  Report Type: 
  Country: None (occurrence: None)
  Receive Date: 20111202
  Receipt Date: 20101122
  Transmission Date: 20120403
  Serious: Yes (Disabling)
  Sender: FDA-Public Use
  Company Number: WAES 0807USA00757

PATIENT
  Age: 50 Year
  Sex: Female
  Weight: 63.5036 kg

DRUGS (2)
  1. [THERAPY UNSPECIFIED] [Concomitant]
  2. FOSAMAX [Suspect]
     Indication: OSTEOPENIA
     Dosage: 70 MG/WKY/PO
     Route: 048
     Dates: start: 20020308, end: 20060706

REACTIONS (33)
  - OSTEONECROSIS [None]
  - BABESIOSIS [None]
  - BLOOD HEAVY METAL INCREASED [None]
  - EPSTEIN-BARR VIRUS INFECTION [None]
  - LOSS OF LIBIDO [None]
  - LYME DISEASE [None]
  - VITAMIN D DEFICIENCY [None]
  - PERFUME SENSITIVITY [None]
  - GINGIVAL RECESSION [None]
  - BLOOD TESTOSTERONE DECREASED [None]
  - TERMINAL INSOMNIA [None]
  - OSTEOARTHRITIS [None]
  - PULPITIS DENTAL [None]
  - PNEUMONIA CHLAMYDIAL [None]
  - NIGHT SWEATS [None]
  - DERMATITIS ALLERGIC [None]
  - GIARDIASIS [None]
  - ALOPECIA [None]
  - BLOOD CORTISOL DECREASED [None]
  - HYPERSENSITIVITY [None]
  - MOTION SICKNESS [None]
  - SENSITIVITY OF TEETH [None]
  - ROCKY MOUNTAIN SPOTTED FEVER [None]
  - URINARY TRACT INFECTION [None]
  - POLLAKIURIA [None]
  - MUSCLE TWITCHING [None]
  - HAEMATOCRIT DECREASED [None]
  - OSTEOPOROSIS [None]
  - ADRENAL DISORDER [None]
  - HOT FLUSH [None]
  - VERTIGO [None]
  - LYMPHADENOPATHY [None]
  - SKIN LESION [None]
